FAERS Safety Report 6719308-X (Version None)
Quarter: 2010Q2

REPORT INFORMATION
  Report Type: 
  Country: None (occurrence: None)
  Receive Date: 20100511
  Receipt Date: 20100427
  Transmission Date: 20101027
  Serious: Yes (Hospitalization, Other)
  Sender: FDA-Public Use
  Company Number: PHHY2010US28163

PATIENT
  Age: 69 Year
  Sex: Female
  Weight: 97 kg

DRUGS (11)
  1. GLEEVEC [Suspect]
     Indication: CHRONIC MYELOID LEUKAEMIA
     Dosage: 400 MG DAILY
     Route: 048
     Dates: start: 20090618
  2. GLEEVEC [Suspect]
     Dosage: 100 MG, TID
     Route: 048
  3. HYDROCHLOROTHIAZIDE [Concomitant]
     Dosage: 25 MG, QD
  4. OMEPRAZOLE [Concomitant]
     Dosage: UNK
  5. HUMALOG [Concomitant]
     Dosage: UNK
  6. KLOR-CON [Concomitant]
     Dosage: UNK
  7. COZAAR [Concomitant]
     Dosage: 50 MG, QD
  8. PROPRANOLOL HYDROCHLORIDE [Concomitant]
     Dosage: 40 MG, BID
  9. ALEVE (CAPLET) [Concomitant]
     Dosage: UNK
  10. PRILOSEC [Concomitant]
     Dosage: 20 MG, QD
  11. CLONAZEPAM [Concomitant]
     Dosage: 0.5 MG, BID

REACTIONS (9)
  - BLOOD CREATININE INCREASED [None]
  - DEHYDRATION [None]
  - DYSARTHRIA [None]
  - HYPOPHAGIA [None]
  - NAUSEA [None]
  - RENAL FAILURE ACUTE [None]
  - SPEECH DISORDER [None]
  - VOMITING [None]
  - WEIGHT DECREASED [None]
